FAERS Safety Report 11273343 (Version 1)
Quarter: 2015Q3

REPORT INFORMATION
  Report Type: Spontaneous
  Country: US (occurrence: US)
  Receive Date: 20150715
  Receipt Date: 20150715
  Transmission Date: 20151125
  Serious: No
  Sender: FDA-Public Use
  Company Number: US-BAUSCH-BL-2014-002920

PATIENT
  Sex: Female

DRUGS (14)
  1. LOTEMAX [Interacting]
     Active Substance: LOTEPREDNOL ETABONATE
     Dates: start: 20140611
  2. TEARS [Concomitant]
     Dosage: LEFT EYE
     Dates: start: 20140612
  3. CIPROFLOXACIN. [Concomitant]
     Active Substance: CIPROFLOXACIN
     Dates: start: 20140613
  4. BESIVANCE [Suspect]
     Active Substance: BESIFLOXACIN
     Indication: PRODUCT USED FOR UNKNOWN INDICATION
     Route: 061
  5. OFLOXACIN. [Interacting]
     Active Substance: OFLOXACIN
     Indication: POSTOPERATIVE CARE
     Dosage: IN LEFT EYE
  6. LOTEMAX [Interacting]
     Active Substance: LOTEPREDNOL ETABONATE
     Indication: POSTOPERATIVE CARE
     Dosage: OD
  7. LOTEMAX [Interacting]
     Active Substance: LOTEPREDNOL ETABONATE
     Dosage: RIGHT EYE
     Dates: start: 20140612
  8. LOTEMAX [Interacting]
     Active Substance: LOTEPREDNOL ETABONATE
     Dates: start: 20140613
  9. KETOROLAC [Concomitant]
     Active Substance: KETOROLAC\KETOROLAC TROMETHAMINE
     Indication: POSTOPERATIVE CARE
  10. TEARS [Concomitant]
     Dosage: RIGHT EYE
     Dates: start: 20140612
  11. PRED FORTE [Interacting]
     Active Substance: PREDNISOLONE ACETATE
     Indication: POSTOPERATIVE CARE
     Dosage: IN LEFT EYE
  12. PRED FORTE [Interacting]
     Active Substance: PREDNISOLONE ACETATE
  13. CIPROFLOXACIN. [Concomitant]
     Active Substance: CIPROFLOXACIN
     Dates: start: 20140608
  14. PRED FORTE [Interacting]
     Active Substance: PREDNISOLONE ACETATE
     Dosage: 2 HOURS
     Dates: start: 20140613

REACTIONS (3)
  - Visual impairment [Unknown]
  - Photophobia [Unknown]
  - Impaired healing [Unknown]
